FAERS Safety Report 8290990 (Version 2)
Quarter: 2013Q2

REPORT INFORMATION
  Report Type: Spontaneous
  Country: VE (occurrence: VE)
  Receive Date: 20111214
  Receipt Date: 20130417
  Transmission Date: 20140414
  Serious: Yes (Other)
  Sender: FDA-Public Use
  Company Number: VE-ROCHE-1020138

PATIENT
  Age: 50 Year
  Sex: Female

DRUGS (2)
  1. XOLAIR [Suspect]
     Indication: ASTHMA
     Route: 058
     Dates: start: 201011, end: 201110
  2. SALBUTAMOL [Concomitant]

REACTIONS (2)
  - Asphyxia [Not Recovered/Not Resolved]
  - Hypertension [Unknown]
